FAERS Safety Report 13073953 (Version 1)
Quarter: 2016Q4

REPORT INFORMATION
  Report Type: Spontaneous
  Country: US (occurrence: US)
  Receive Date: 20161229
  Receipt Date: 20161229
  Transmission Date: 20170207
  Serious: No
  Sender: FDA-Public Use
  Company Number: US-IMPAX LABORATORIES, INC-2015-IPXL-01305

PATIENT
  Age: 87 Year
  Sex: Male

DRUGS (2)
  1. OXYBUTYNIN CHLORIDE ER [Suspect]
     Active Substance: OXYBUTYNIN CHLORIDE
     Indication: URINARY RETENTION
     Dosage: UNK
     Route: 065
  2. MYRBETRIQ [Suspect]
     Active Substance: MIRABEGRON
     Indication: URINARY RETENTION
     Dosage: 25 OR 50 MG (MIXED) EACH DAY
     Route: 048
     Dates: start: 201503, end: 20150415

REACTIONS (3)
  - Urine odour abnormal [Not Recovered/Not Resolved]
  - Drug ineffective [Unknown]
  - Chromaturia [Not Recovered/Not Resolved]

NARRATIVE: CASE EVENT DATE: 20150325
